FAERS Safety Report 23430635 (Version 1)
Quarter: 2024Q1

REPORT INFORMATION
  Report Type: Other
  Country: GB (occurrence: GB)
  Receive Date: 20240123
  Receipt Date: 20240123
  Transmission Date: 20240410
  Serious: Yes (Hospitalization)
  Sender: FDA-Public Use
  Company Number: None

PATIENT
  Age: 51 Year
  Weight: 103.8 kg

DRUGS (5)
  1. PREDNISOLONE [Suspect]
     Active Substance: PREDNISOLONE
     Indication: Follicular lymphoma
     Dosage: UNK
     Route: 065
     Dates: start: 20221020
  2. CYCLOPHOSPHAMIDE [Suspect]
     Active Substance: CYCLOPHOSPHAMIDE
     Indication: Follicular lymphoma
     Dosage: UNK
     Route: 065
     Dates: start: 20221020
  3. OBINUTUZUMAB [Suspect]
     Active Substance: OBINUTUZUMAB
     Indication: Follicular lymphoma
     Dosage: UNK
     Route: 042
     Dates: start: 20221020
  4. VINCRISTINE [Suspect]
     Active Substance: VINCRISTINE
     Indication: Follicular lymphoma
     Dosage: UNK
     Route: 065
     Dates: start: 20221020
  5. PIPERACILLIN SODIUM\TAZOBACTAM SODIUM [Concomitant]
     Active Substance: PIPERACILLIN SODIUM\TAZOBACTAM SODIUM
     Indication: Product used for unknown indication
     Dosage: UNK
     Route: 065

REACTIONS (1)
  - Febrile neutropenia [Recovered/Resolved]

NARRATIVE: CASE EVENT DATE: 20230111
